FAERS Safety Report 9255563 (Version 1)
Quarter: 2013Q2

REPORT INFORMATION
  Report Type: Spontaneous
  Country: US (occurrence: US)
  Receive Date: 20130425
  Receipt Date: 20130425
  Transmission Date: 20140414
  Serious: No
  Sender: FDA-Public Use
  Company Number: US-009507513-1304USA014838

PATIENT
  Sex: Female

DRUGS (1)
  1. FOSAMAX [Suspect]
     Dosage: UNK
     Route: 048
     Dates: end: 201007

REACTIONS (1)
  - Anaemia [Unknown]
